FAERS Safety Report 6135873-8 (Version None)
Quarter: 2009Q1

REPORT INFORMATION
  Report Type: 
  Country: None (occurrence: None)
  Receive Date: 20090327
  Receipt Date: 20081226
  Transmission Date: 20090719
  Serious: Yes (Other)
  Sender: FDA-Public Use
  Company Number: US-MERCK-0810USA03383

PATIENT
  Age: 8 Year
  Sex: Male
  Weight: 27 kg

DRUGS (3)
  1. SINGULAIR [Suspect]
     Indication: HYPERSENSITIVITY
     Route: 048
     Dates: start: 20020101, end: 20071201
  2. SINGULAIR [Suspect]
     Route: 048
     Dates: start: 20020101, end: 20080101
  3. ZYRTEC [Concomitant]
     Indication: HYPERSENSITIVITY
     Route: 048
     Dates: start: 20060101

REACTIONS (6)
  - ABNORMAL BEHAVIOUR [None]
  - DEPRESSION [None]
  - HOMICIDAL IDEATION [None]
  - PHYSICAL ASSAULT [None]
  - SELF INJURIOUS BEHAVIOUR [None]
  - SUICIDAL IDEATION [None]
